FAERS Safety Report 9272112 (Version 1)
Quarter: 2013Q2

REPORT INFORMATION
  Report Type: Spontaneous
  Country: US (occurrence: US)
  Receive Date: 20130506
  Receipt Date: 20130506
  Transmission Date: 20140414
  Serious: No
  Sender: FDA-Public Use
  Company Number: US-ASTRAZENECA-2013SE26602

PATIENT
  Sex: Female

DRUGS (3)
  1. CRESTOR [Suspect]
     Indication: BLOOD CHOLESTEROL INCREASED
     Route: 048
     Dates: start: 20130326, end: 201304
  2. APRISO [Concomitant]
     Indication: COLITIS
  3. ZOLOFT [Concomitant]
     Indication: DEPRESSION

REACTIONS (1)
  - Muscle spasms [Recovering/Resolving]
